FAERS Safety Report 17596912 (Version 2)
Quarter: 2020Q2

REPORT INFORMATION
  Report Type: Report from Study
  Country: US (occurrence: US)
  Receive Date: 20200330
  Receipt Date: 20200403
  Transmission Date: 20200713
  Serious: Yes (Life-Threatening, Hospitalization, Other)
  Sender: FDA-Public Use
  Company Number: US-BRISTOL-MYERS SQUIBB COMPANY-BMS-2020-026381

PATIENT
  Age: 64 Year
  Sex: Male
  Weight: 105 kg

DRUGS (2)
  1. NIVOLUMAB [Suspect]
     Active Substance: NIVOLUMAB
     Indication: NEUROENDOCRINE TUMOUR
     Dosage: 480 MILLIGRAM, Q4WK
     Route: 042
     Dates: start: 20191206
  2. TEMOZOLOMIDE. [Suspect]
     Active Substance: TEMOZOLOMIDE
     Indication: NEUROENDOCRINE TUMOUR
     Dosage: 360 MILLIGRAM, DAYS 1-5
     Route: 048
     Dates: start: 20191206, end: 20200302

REACTIONS (3)
  - Cholecystitis acute [Unknown]
  - Sepsis [Unknown]
  - Cholangitis acute [Unknown]

NARRATIVE: CASE EVENT DATE: 20200322
